FAERS Safety Report 16337365 (Version 1)
Quarter: 2019Q2

REPORT INFORMATION
  Report Type: Spontaneous
  Country: US (occurrence: US)
  Receive Date: 20190415
  Receipt Date: 20190415
  Transmission Date: 20190711
  Serious: Yes (Hospitalization)
  Sender: FDA-Public Use
  Company Number: None

PATIENT
  Age: 38 Year
  Sex: Male

DRUGS (1)
  1. INFLIXIMAB-ABDA [Suspect]
     Active Substance: INFLIXIMAB-ABDA
     Indication: CROHN^S DISEASE
     Dates: start: 20181219, end: 20190102

REACTIONS (3)
  - Anaphylactic reaction [None]
  - Pruritus [None]
  - Angioedema [None]

NARRATIVE: CASE EVENT DATE: 20190102
